FAERS Safety Report 9159243 (Version 1)
Quarter: 2013Q1

REPORT INFORMATION
  Report Type: Spontaneous
  Country: GB (occurrence: GB)
  Receive Date: 20130313
  Receipt Date: 20130313
  Transmission Date: 20140127
  Serious: Yes (Other)
  Sender: FDA-Public Use
  Company Number: GB-BAYER-2013-029237

PATIENT
  Age: 34 Year
  Sex: Female
  Weight: 68.03 kg

DRUGS (6)
  1. MIRENA [Suspect]
     Indication: ENDOMETRIOSIS
     Dosage: 20 MCG/24HR, CONT
     Route: 067
     Dates: start: 20121114, end: 20130221
  2. AZATHIOPRINE [Concomitant]
  3. FERROUS SULPHATE [Concomitant]
  4. HYDROXYCHLOROQUINE [Concomitant]
  5. THYROXINE [Concomitant]
  6. WARFARIN [Concomitant]

REACTIONS (6)
  - Depression [Unknown]
  - Fatigue [Unknown]
  - Menorrhagia [Unknown]
  - Breast tenderness [Recovered/Resolved]
  - Vaginal odour [Unknown]
  - Weight increased [Recovering/Resolving]
